FAERS Safety Report 5252927-9 (Version None)
Quarter: 2007Q1

REPORT INFORMATION
  Report Type: 
  Country: None (occurrence: None)
  Receive Date: 20070301
  Receipt Date: 20070221
  Transmission Date: 20070707
  Serious: Yes (Hospitalization)
  Sender: FDA-Public Use
  Company Number: CA-BAYER-200711088GDS

PATIENT
  Age: 68 Year
  Sex: Male
  Weight: 46 kg

DRUGS (3)
  1. SORAFENIB [Suspect]
     Indication: RENAL CELL CARCINOMA STAGE UNSPECIFIED
     Route: 048
     Dates: start: 20060711
  2. PERINDOPRIL ERBUMINE [Concomitant]
     Indication: HYPERTENSION
     Route: 048
     Dates: start: 20060801
  3. OYXCODONE [Concomitant]
     Indication: PAIN
     Route: 048
     Dates: start: 20060615

REACTIONS (1)
  - SYNCOPE [None]
